FAERS Safety Report 10665761 (Version 1)
Quarter: 2014Q4

REPORT INFORMATION
  Report Type: Report from Study
  Country: CO (occurrence: CO)
  Receive Date: 20141219
  Receipt Date: 20141219
  Transmission Date: 20150529
  Serious: Yes (Other)
  Sender: FDA-Public Use
  Company Number: CO-SA-2014SA172542

PATIENT
  Age: 54 Year
  Sex: Male

DRUGS (2)
  1. LANTUS [Suspect]
     Active Substance: INSULIN GLARGINE
     Indication: DIABETES MELLITUS
     Dosage: DOSE:40 UNIT(S)
     Route: 058
     Dates: start: 2012
  2. LANTUS [Suspect]
     Active Substance: INSULIN GLARGINE
     Indication: DIABETES MELLITUS
     Dosage: DOSE:50 UNIT(S)
     Route: 058

REACTIONS (7)
  - Pyrexia [Unknown]
  - Insomnia [Unknown]
  - Diabetic retinopathy [Recovering/Resolving]
  - Vision blurred [Unknown]
  - Hyperglycaemia [Unknown]
  - Malaise [Unknown]
  - Myalgia [Unknown]

NARRATIVE: CASE EVENT DATE: 2014
